FAERS Safety Report 4276371-6 (Version None)
Quarter: 2004Q1

REPORT INFORMATION
  Report Type: 
  Country: None (occurrence: None)
  Receive Date: 20040120
  Receipt Date: 20040120
  Transmission Date: 20041129
  Serious: Yes (Hospitalization)
  Sender: FDA-Public Use
  Company Number: None

PATIENT
  Age: 76 Year
  Sex: Male
  Weight: 58.4 kg

DRUGS (4)
  1. HEPARIN [Suspect]
  2. LEVOFLOXACIN [Concomitant]
  3. AZITHROMYCIN [Concomitant]
  4. RABEPRAZOLE SODIUM [Concomitant]

REACTIONS (1)
  - THROMBOCYTOPENIA [None]
